FAERS Safety Report 10056584 (Version 2)
Quarter: 2014Q2

REPORT INFORMATION
  Report Type: Spontaneous
  Country: US (occurrence: US)
  Receive Date: 20140403
  Receipt Date: 20140516
  Transmission Date: 20141212
  Serious: No
  Sender: FDA-Public Use
  Company Number: US-PFIZER INC-2014093267

PATIENT
  Sex: Male

DRUGS (4)
  1. CELEBREX [Suspect]
     Indication: SPONDYLITIS
     Dosage: DAILY
  2. CELEBREX [Suspect]
     Indication: SPONDYLITIS
     Dosage: 2X/DAY
  3. CELEBREX [Suspect]
     Indication: ARTHRITIS
     Dosage: DAILY
  4. CELEBREX [Suspect]
     Indication: PAIN

REACTIONS (2)
  - Intentional product misuse [Unknown]
  - Pain [Unknown]
